FAERS Safety Report 9942845 (Version 1)
Quarter: 2014Q1

REPORT INFORMATION
  Report Type: Report from Study
  Country: US (occurrence: US)
  Receive Date: 20140303
  Receipt Date: 20140303
  Transmission Date: 20141002
  Serious: No
  Sender: FDA-Public Use
  Company Number: US-ABBVIE-13P-163-1045501-00

PATIENT
  Age: 58 Year
  Sex: Male

DRUGS (10)
  1. HUMIRA [Suspect]
     Indication: COLITIS ULCERATIVE
     Dates: start: 20121108
  2. MERCAPTOPURINE [Concomitant]
     Indication: COLITIS ULCERATIVE
  3. COLAZAL [Concomitant]
     Indication: COLITIS ULCERATIVE
  4. LISINOPRIL [Concomitant]
     Indication: CARDIAC DISORDER
  5. METOPROLOL [Concomitant]
     Indication: CARDIAC DISORDER
  6. SIMVASTATIN [Concomitant]
     Indication: BLOOD CHOLESTEROL INCREASED
  7. ASPIRIN [Concomitant]
     Indication: PRODUCT USED FOR UNKNOWN INDICATION
  8. VITAMIN D [Concomitant]
     Indication: NUTRITIONAL SUPPLEMENTATION
  9. FOLIC ACID [Concomitant]
     Indication: NUTRITIONAL SUPPLEMENTATION
  10. FISH OIL [Concomitant]

REACTIONS (1)
  - Drug ineffective [Not Recovered/Not Resolved]
